FAERS Safety Report 7052857-6 (Version None)
Quarter: 2010Q4

REPORT INFORMATION
  Report Type: 
  Country: None (occurrence: None)
  Receive Date: 20101020
  Receipt Date: 20101015
  Transmission Date: 20110411
  Serious: Yes (Hospitalization, Other)
  Sender: FDA-Public Use
  Company Number: US-ASTRAZENECA-2007UW18064

PATIENT
  Age: 507 Month
  Sex: Female
  Weight: 102.1 kg

DRUGS (4)
  1. SEROQUEL [Suspect]
     Indication: BIPOLAR DISORDER
     Dosage: 100 MG TO 800 MG
     Route: 048
     Dates: start: 20031201, end: 20040801
  2. SEROQUEL [Suspect]
     Dosage: 25-100 MG
     Route: 048
     Dates: start: 20040210
  3. CLONAZEPAM [Concomitant]
     Dosage: 1-2 MG
     Dates: start: 20040826
  4. LITHIUM [Concomitant]
     Dates: start: 20090701

REACTIONS (5)
  - ADVERSE DRUG REACTION [None]
  - DIABETIC KETOACIDOSIS [None]
  - HYPERPROLACTINAEMIA [None]
  - TYPE 1 DIABETES MELLITUS [None]
  - TYPE 2 DIABETES MELLITUS [None]
